FAERS Safety Report 5484775-9 (Version None)
Quarter: 2007Q4

REPORT INFORMATION
  Report Type: 
  Country: None (occurrence: None)
  Receive Date: 20071012
  Receipt Date: 20071002
  Transmission Date: 20080405
  Serious: Yes (Death)
  Sender: FDA-Public Use
  Company Number: FR-PFIZER INC-2007083293

PATIENT
  Sex: Female

DRUGS (6)
  1. XANAX [Suspect]
     Route: 048
  2. ZOLOFT [Suspect]
     Route: 048
  3. EQUANIL [Suspect]
     Route: 048
  4. MEPRONIZINE [Suspect]
     Route: 048
  5. EFFEXOR [Suspect]
     Route: 048
  6. DEROXAT [Suspect]
     Route: 048

REACTIONS (2)
  - COMA [None]
  - DEATH [None]
